FAERS Safety Report 7963578-7 (Version None)
Quarter: 2011Q4

REPORT INFORMATION
  Report Type: 
  Country: None (occurrence: None)
  Receive Date: 20111208
  Receipt Date: 20111202
  Transmission Date: 20120403
  Serious: No
  Sender: FDA-Public Use
  Company Number: US-BAYER-2011-117171

PATIENT
  Age: 59 Year
  Sex: Female
  Weight: 82 kg

DRUGS (5)
  1. DIOVAN HCT [Concomitant]
  2. ALEVE (CAPLET) [Suspect]
     Dosage: 2 U, BID
     Route: 048
     Dates: start: 20111101
  3. ACETYLSALICYLIC ACID SRT [Concomitant]
  4. OXYCODONE HCL [Concomitant]
  5. KERPA [Concomitant]

REACTIONS (1)
  - NO ADVERSE EVENT [None]
